FAERS Safety Report 6289653-3 (Version None)
Quarter: 2009Q3

REPORT INFORMATION
  Report Type: 
  Country: None (occurrence: None)
  Receive Date: 20090730
  Receipt Date: 20080609
  Transmission Date: 20100115
  Serious: No
  Sender: FDA-Public Use
  Company Number: US-BRISTOL-MYERS SQUIBB COMPANY-14107338

PATIENT
  Age: 7 Decade

DRUGS (1)
  1. COUMADIN [Suspect]
     Indication: ANTIPHOSPHOLIPID SYNDROME
     Dosage: DURATION - APPROXIMATELY 1 MONTH.
     Route: 048

REACTIONS (1)
  - INTERNATIONAL NORMALISED RATIO ABNORMAL [None]
